FAERS Safety Report 22337917 (Version 1)
Quarter: 2023Q2

REPORT INFORMATION
  Report Type: Spontaneous
  Country: US (occurrence: None)
  Receive Date: 20230518
  Receipt Date: 20230518
  Transmission Date: 20230722
  Serious: No
  Sender: FDA-Public Use
  Company Number: US-ROCHE-3314088

PATIENT
  Sex: Female

DRUGS (3)
  1. ACTEMRA [Suspect]
     Active Substance: TOCILIZUMAB
     Indication: Systemic scleroderma
     Dosage: 162 MG/0.9 ML
     Route: 058
     Dates: start: 20230227
  2. ACTEMRA [Suspect]
     Active Substance: TOCILIZUMAB
  3. REMODULIN [Concomitant]
     Active Substance: TREPROSTINIL
     Route: 042

REACTIONS (5)
  - Headache [Recovered/Resolved]
  - Oedema peripheral [Recovering/Resolving]
  - Productive cough [Not Recovered/Not Resolved]
  - Insomnia [Unknown]
  - Lower respiratory tract infection [Unknown]
